FAERS Safety Report 19393401 (Version 1)
Quarter: 2021Q2

REPORT INFORMATION
  Report Type: Spontaneous
  Country: US (occurrence: US)
  Receive Date: 20210608
  Receipt Date: 20210608
  Transmission Date: 20210717
  Serious: Yes (Disabling)
  Sender: FDA-Public Use
  Company Number: None

PATIENT
  Age: 29 Year
  Sex: Male
  Weight: 64.35 kg

DRUGS (1)
  1. FLONASE [Suspect]
     Active Substance: FLUTICASONE PROPIONATE
     Indication: TINNITUS
     Dosage: ?          OTHER STRENGTH:MCG;OTHER ROUTE:SPRAY IN EACH NOSTRIL ONCE?
     Dates: start: 20210407, end: 20210505

REACTIONS (7)
  - Burning sensation [None]
  - Paraesthesia [None]
  - Pruritus [None]
  - Pain [None]
  - Discomfort [None]
  - Feeling cold [None]
  - Nasal discomfort [None]

NARRATIVE: CASE EVENT DATE: 20210505
